FAERS Safety Report 20334598 (Version 1)
Quarter: 2022Q1

REPORT INFORMATION
  Report Type: Report from Study
  Country: AR (occurrence: AR)
  Receive Date: 20220114
  Receipt Date: 20220114
  Transmission Date: 20220423
  Serious: Yes (Other)
  Sender: FDA-Public Use
  Company Number: AR-SA-SAC20211115001519

PATIENT
  Age: 42 Year
  Sex: Female

DRUGS (1)
  1. LANREOTIDE ACETATE [Suspect]
     Active Substance: LANREOTIDE ACETATE
     Indication: Neuroendocrine tumour
     Dosage: 120 MG (FREQUENCY : EVERY 28 DAYS)
     Route: 051
     Dates: start: 20211006

REACTIONS (4)
  - Breast cancer [Recovering/Resolving]
  - Injection site mass [Recovering/Resolving]
  - Product administered at inappropriate site [Unknown]
  - Wrong technique in product usage process [Unknown]

NARRATIVE: CASE EVENT DATE: 20210101
